FAERS Safety Report 14134359 (Version 2)
Quarter: 2018Q1

REPORT INFORMATION
  Report Type: Spontaneous
  Country: US (occurrence: US)
  Receive Date: 20171027
  Receipt Date: 20180220
  Transmission Date: 20180508
  Serious: Yes (Life-Threatening, Hospitalization)
  Sender: FDA-Public Use
  Company Number: US-ACCORD-060120

PATIENT
  Age: 49 Year
  Sex: Female

DRUGS (7)
  1. RISPERDAL CONSTA [Suspect]
     Active Substance: RISPERIDONE
     Indication: SCHIZOAFFECTIVE DISORDER BIPOLAR TYPE
     Dosage: 4 MG NIGHTLY,??RISPERIDONE (RISPERDAL CONSTA) 50MG IM EVERY 2 WEEKS
  2. BENZATROPINE [Concomitant]
     Active Substance: BENZTROPINE
     Indication: SCHIZOAFFECTIVE DISORDER BIPOLAR TYPE
     Dosage: 2 MG BID
  3. HALOPERIDOL. [Suspect]
     Active Substance: HALOPERIDOL
     Indication: SCHIZOAFFECTIVE DISORDER BIPOLAR TYPE
     Route: 042
  4. OLANZAPINE. [Suspect]
     Active Substance: OLANZAPINE
     Indication: SCHIZOAFFECTIVE DISORDER BIPOLAR TYPE
     Route: 030
  5. CLOZAPINE. [Suspect]
     Active Substance: CLOZAPINE
     Indication: SCHIZOAFFECTIVE DISORDER BIPOLAR TYPE
     Dosage: STARTED WITH 25 MG?NIGHTLY
  6. VALPROIC ACID. [Interacting]
     Active Substance: VALPROIC ACID
     Indication: SCHIZOAFFECTIVE DISORDER BIPOLAR TYPE
     Dosage: NIGHTLY
  7. SERTRALINE [Concomitant]
     Active Substance: SERTRALINE HYDROCHLORIDE
     Dosage: DAILY

REACTIONS (10)
  - Pneumonia aspiration [Recovering/Resolving]
  - Sedation [Recovering/Resolving]
  - Myocarditis [Unknown]
  - Electrocardiogram QT prolonged [Recovered/Resolved]
  - Sepsis [Recovering/Resolving]
  - Drug interaction [Unknown]
  - Torsade de pointes [Recovered/Resolved]
  - Atrial fibrillation [Unknown]
  - Salivary hypersecretion [Unknown]
  - Metabolic disorder [Recovered/Resolved]
